FAERS Safety Report 19201258 (Version 1)
Quarter: 2021Q2

REPORT INFORMATION
  Report Type: Spontaneous
  Country: BE (occurrence: BE)
  Receive Date: 20210430
  Receipt Date: 20210430
  Transmission Date: 20210717
  Serious: Yes (Other)
  Sender: FDA-Public Use
  Company Number: BE-ROCHE-2818375

PATIENT
  Age: 2 Month
  Sex: Male

DRUGS (1)
  1. XELODA [Suspect]
     Active Substance: CAPECITABINE
     Indication: PRODUCT USED FOR UNKNOWN INDICATION
     Route: 064
     Dates: end: 20200322

REACTIONS (2)
  - Foetal exposure during pregnancy [Unknown]
  - Persistent left superior vena cava [Unknown]

NARRATIVE: CASE EVENT DATE: 202010
